FAERS Safety Report 22152360 (Version 1)
Quarter: 2023Q1

REPORT INFORMATION
  Report Type: Spontaneous
  Country: IT (occurrence: IT)
  Receive Date: 20230329
  Receipt Date: 20230329
  Transmission Date: 20230418
  Serious: Yes (Death, Life-Threatening, Other)
  Sender: FDA-Public Use
  Company Number: IT-AMGEN-ITASP2023050834

PATIENT

DRUGS (7)
  1. CARFILZOMIB [Suspect]
     Active Substance: CARFILZOMIB
     Indication: Plasma cell leukaemia
     Dosage: 20 MILLIGRAM/SQ. METER, ON DAYS 1,2,8,9,15,16
     Route: 065
  2. CARFILZOMIB [Suspect]
     Active Substance: CARFILZOMIB
     Dosage: 36 MILLIGRAM/SQ. METER, ON DAYS 1,2,8,9,15,16
     Route: 065
  3. CARFILZOMIB [Suspect]
     Active Substance: CARFILZOMIB
     Dosage: 27 MILLIGRAM/SQ. METER, ON DAYS 1,2,15,16 FOR THE FIRST TWELVE CYCLES
     Route: 065
  4. CARFILZOMIB [Suspect]
     Active Substance: CARFILZOMIB
     Dosage: 56 MILLIGRAM/SQ. METER, ON DAYS 1,15
     Route: 065
  5. LENALIDOMIDE [Suspect]
     Active Substance: LENALIDOMIDE
     Indication: Plasma cell leukaemia
     Dosage: 25 MILLIGRAM, ON DAYS 1-21
     Route: 065
  6. LENALIDOMIDE [Suspect]
     Active Substance: LENALIDOMIDE
     Dosage: 10 MILLIGRAM, ON DAYS 1-21/28 DAYS
     Route: 065
  7. DEXAMETHASONE [Suspect]
     Active Substance: DEXAMETHASONE
     Indication: Plasma cell leukaemia
     Dosage: 20 MILLIGRAM, ON DAYS 1,2,8,9,15,16,22,23
     Route: 065

REACTIONS (11)
  - Disease progression [Fatal]
  - Death [Fatal]
  - Pneumonia [Fatal]
  - Sepsis [Fatal]
  - Aspergillus infection [Fatal]
  - Small intestine carcinoma [Fatal]
  - Disseminated intravascular coagulation [Fatal]
  - Chronic obstructive pulmonary disease [Fatal]
  - Haematotoxicity [Recovering/Resolving]
  - Infection [Recovering/Resolving]
  - Respiratory disorder [Recovering/Resolving]
